FAERS Safety Report 4677433-1 (Version None)
Quarter: 2005Q2

REPORT INFORMATION
  Report Type: 
  Country: None (occurrence: None)
  Receive Date: 20050531
  Receipt Date: 20050216
  Transmission Date: 20051028
  Serious: Yes (Hospitalization)
  Sender: FDA-Public Use
  Company Number: US-BOEHRINGER INGELHEIM PHARMACEUTICALS, INC.-2005-BP-02702BP

PATIENT
  Age: 54 Year
  Sex: Female
  Weight: 90 kg

DRUGS (8)
  1. MICARDIS [Suspect]
     Indication: HYPERTENSION
     Route: 048
     Dates: start: 20050227
  2. COLESTID [Concomitant]
     Route: 062
  3. ZETIA [Concomitant]
     Dosage: 10 QHS
  4. FOSAMAX [Concomitant]
  5. PREVACID [Concomitant]
  6. PROZAC [Concomitant]
  7. ESTRADERM [Concomitant]
  8. INSULIN [Concomitant]

REACTIONS (2)
  - CONTUSION [None]
  - SYNCOPE [None]
